FAERS Safety Report 8378871-6 (Version None)
Quarter: 2012Q2

REPORT INFORMATION
  Report Type: 
  Country: None (occurrence: None)
  Receive Date: 20120523
  Receipt Date: 20120517
  Transmission Date: 20120825
  Serious: Yes (Hospitalization)
  Sender: FDA-Public Use
  Company Number: ZA-AMGEN-ZAFSP2012030864

PATIENT
  Age: 55 Year
  Sex: Female
  Weight: 68 kg

DRUGS (5)
  1. TEGRETOL [Concomitant]
     Dosage: 400 MG, UNK
  2. ARANESP [Suspect]
     Indication: ANAEMIA
     Dosage: 60 MUG, QWK
     Route: 058
     Dates: start: 20120503
  3. IRBEWIN [Concomitant]
     Dosage: 300 MG, UNK
  4. LASIX [Concomitant]
     Dosage: 600 MG, UNK
  5. TITRALAC                           /00183701/ [Concomitant]
     Dosage: UNK UNK, TID

REACTIONS (2)
  - PERITONITIS [None]
  - DYSKINESIA [None]
